FAERS Safety Report 7522666-X (Version None)
Quarter: 2011Q2

REPORT INFORMATION
  Report Type: 
  Country: None (occurrence: None)
  Receive Date: 20110603
  Receipt Date: 20110524
  Transmission Date: 20111010
  Serious: No
  Sender: FDA-Public Use
  Company Number: US-PFIZER INC-2011118618

PATIENT
  Sex: Female
  Weight: 63 kg

DRUGS (4)
  1. AZITHROMYCIN [Suspect]
     Dosage: UNK
  2. FLEXERIL [Concomitant]
     Indication: MUSCLE SPASMS
     Dosage: 10 MG, UNK
     Route: 048
     Dates: start: 20110418, end: 20110518
  3. LYRICA [Concomitant]
     Indication: NEURALGIA
     Dosage: 75 MG, 2X/DAY
     Route: 048
     Dates: start: 20110418
  4. LORTAB [Concomitant]
     Indication: PAIN
     Dosage: UNK

REACTIONS (1)
  - DRUG HYPERSENSITIVITY [None]
